FAERS Safety Report 24418409 (Version 1)
Quarter: 2024Q4

REPORT INFORMATION
  Report Type: Spontaneous
  Country: US (occurrence: US)
  Receive Date: 20241009
  Receipt Date: 20241009
  Transmission Date: 20250114
  Serious: No
  Sender: SANOFI AVENTIS
  Company Number: US-SA-2024SA287005

PATIENT
  Age: 46 Year
  Sex: Female
  Weight: 47.27 kg

DRUGS (1)
  1. DUPIXENT [Suspect]
     Active Substance: DUPILUMAB
     Indication: Asthma
     Dosage: 300 MG, QOW
     Route: 058
     Dates: start: 2024

REACTIONS (4)
  - Menstruation irregular [Unknown]
  - Heavy menstrual bleeding [Unknown]
  - Condition aggravated [Unknown]
  - Menstrual clots [Unknown]

NARRATIVE: CASE EVENT DATE: 20240901
